FAERS Safety Report 20995061 (Version 2)
Quarter: 2022Q3

REPORT INFORMATION
  Report Type: Spontaneous
  Country: None (occurrence: US)
  Receive Date: 20220622
  Receipt Date: 20220706
  Transmission Date: 20221026
  Serious: No
  Sender: FDA-Public Use
  Company Number: US-STI Pharma LLC-2130181

PATIENT
  Age: 74 Year
  Sex: Male

DRUGS (1)
  1. CYCLOPHOSPHAMIDE [Suspect]
     Active Substance: CYCLOPHOSPHAMIDE
     Indication: Plasma cell myeloma
     Route: 048
     Dates: start: 20220304, end: 20220622

REACTIONS (1)
  - Diarrhoea [Unknown]

NARRATIVE: CASE EVENT DATE: 20220622
